FAERS Safety Report 13859295 (Version 1)
Quarter: 2017Q3

REPORT INFORMATION
  Report Type: Spontaneous
  Country: US (occurrence: US)
  Receive Date: 20170811
  Receipt Date: 20170811
  Transmission Date: 20171127
  Serious: No
  Sender: FDA-Public Use
  Company Number: US-PERRIGO-17US003274

PATIENT
  Sex: Female

DRUGS (2)
  1. LORATADINE. [Suspect]
     Active Substance: LORATADINE
     Indication: NASAL CONGESTION
  2. LORATADINE. [Suspect]
     Active Substance: LORATADINE
     Indication: SINUSITIS
     Dosage: 10 MG, QD
     Route: 048
     Dates: start: 20170410, end: 20170412

REACTIONS (4)
  - Condition aggravated [Recovered/Resolved]
  - Dizziness [Recovered/Resolved]
  - Headache [Not Recovered/Not Resolved]
  - Off label use [Recovered/Resolved]

NARRATIVE: CASE EVENT DATE: 20170410
